FAERS Safety Report 10978134 (Version 1)
Quarter: 2015Q1

REPORT INFORMATION
  Report Type: Spontaneous
  Country: FR (occurrence: None)
  Receive Date: 20150331
  Receipt Date: 20150331
  Transmission Date: 20150721
  Serious: Yes (Life-Threatening, Hospitalization)
  Sender: FDA-Public Use
  Company Number: FK201501509

PATIENT
  Age: 70 Year
  Sex: Female
  Weight: 60 kg

DRUGS (2)
  1. PACLITAXEL. [Suspect]
     Active Substance: PACLITAXEL
     Indication: ENDOMETRIAL ADENOCARCINOMA
     Route: 042
     Dates: start: 20150108
  2. CARBOPLATIN. [Suspect]
     Active Substance: CARBOPLATIN
     Indication: ENDOMETRIAL ADENOCARCINOMA
     Route: 042
     Dates: start: 20150108

REACTIONS (16)
  - Hypoventilation [None]
  - Respiratory acidosis [None]
  - Rash [None]
  - Acquired diaphragmatic eventration [None]
  - Vomiting [None]
  - Forced vital capacity decreased [None]
  - Respiratory distress [None]
  - Infusion site extravasation [None]
  - Polyneuropathy [None]
  - Oedema peripheral [None]
  - Inflammation [None]
  - Localised oedema [None]
  - Peripheral sensorimotor neuropathy [None]
  - Nausea [None]
  - Diaphragmatic paralysis [None]
  - Erythema [None]

NARRATIVE: CASE EVENT DATE: 20150121
